FAERS Safety Report 6767003-3 (Version None)
Quarter: 2010Q2

REPORT INFORMATION
  Report Type: 
  Country: None (occurrence: None)
  Receive Date: 20100611
  Receipt Date: 20100531
  Transmission Date: 20101027
  Serious: Yes (Hospitalization, Other)
  Sender: FDA-Public Use
  Company Number: TW-ELI_LILLY_AND_COMPANY-TW201006000464

PATIENT
  Age: 87 Year

DRUGS (2)
  1. FORTEO [Suspect]
     Indication: OSTEOPOROSIS
     Dosage: 20 UG, DAILY (1/D)
     Route: 058
     Dates: start: 20100511, end: 20100517
  2. CELEBREX [Concomitant]
     Dosage: UNK, UNKNOWN

REACTIONS (5)
  - DIZZINESS [None]
  - MONOPLEGIA [None]
  - NAUSEA [None]
  - NERVE COMPRESSION [None]
  - RENAL FAILURE ACUTE [None]
